FAERS Safety Report 12055660 (Version 8)
Quarter: 2021Q4

REPORT INFORMATION
  Report Type: Report from Study
  Country: JP (occurrence: JP)
  Receive Date: 20160209
  Receipt Date: 20211025
  Transmission Date: 20220303
  Serious: Yes (Other)
  Sender: FDA-Public Use
  Company Number: JP-002147023-PHJP2015JP006327

PATIENT

DRUGS (13)
  1. RUXOLITINIB [Suspect]
     Active Substance: RUXOLITINIB
     Indication: Primary myelofibrosis
     Dosage: 12.5 MG, BID
     Route: 048
     Dates: start: 20141127
  2. RUXOLITINIB [Suspect]
     Active Substance: RUXOLITINIB
     Dosage: 5 MG, BID
     Route: 048
  3. RUXOLITINIB [Suspect]
     Active Substance: RUXOLITINIB
     Dosage: 10 MG, BID
     Route: 048
  4. RUXOLITINIB [Suspect]
     Active Substance: RUXOLITINIB
     Dosage: 15 MG, BID
     Route: 048
  5. RUXOLITINIB [Suspect]
     Active Substance: RUXOLITINIB
     Dosage: 12.5 MG, BID
     Route: 048
  6. RUXOLITINIB [Suspect]
     Active Substance: RUXOLITINIB
     Dosage: 10 MG, BID
     Route: 048
     Dates: start: 20160210, end: 20160510
  7. RUXOLITINIB [Suspect]
     Active Substance: RUXOLITINIB
     Dosage: 15 MG DAILY (IN 2 DIVIDED DOSES)
     Route: 048
     Dates: start: 20160511, end: 20160531
  8. RUXOLITINIB [Suspect]
     Active Substance: RUXOLITINIB
     Dosage: 5 MG, BID
     Route: 048
     Dates: start: 20160601, end: 20161004
  9. RUXOLITINIB [Suspect]
     Active Substance: RUXOLITINIB
     Dosage: 15 MG DAILY (IN 2 DIVIDED DOSES)
     Route: 048
     Dates: start: 20161005, end: 20170307
  10. RUXOLITINIB [Suspect]
     Active Substance: RUXOLITINIB
     Dosage: 10 MG, BID
     Route: 048
     Dates: start: 20170308, end: 20170606
  11. RUXOLITINIB [Suspect]
     Active Substance: RUXOLITINIB
     Dosage: 15 MG/20 MG ON ALTERNATE DAYS
     Route: 048
     Dates: start: 20170607
  12. IRRADIATED RED CELLS CONCENTRATES-LEUKOCYTES [Concomitant]
     Indication: Primary myelofibrosis
     Dosage: 2 IU, UNK
     Route: 065
     Dates: start: 20151111, end: 20151222
  13. IRRADIATED RED CELLS CONCENTRATES-LEUKOCYTES [Concomitant]
     Indication: Anaemia
     Dosage: 2 IU, UNK
     Route: 065
     Dates: start: 20160511, end: 20160622

REACTIONS (7)
  - Anaemia [Not Recovered/Not Resolved]
  - Therapeutic product effect incomplete [Unknown]
  - Blood erythropoietin increased [Unknown]
  - Platelet count decreased [Not Recovered/Not Resolved]
  - Red blood cell count increased [Unknown]
  - Splenomegaly [Not Recovered/Not Resolved]
  - White blood cell count decreased [Not Recovered/Not Resolved]

NARRATIVE: CASE EVENT DATE: 20141201
